FAERS Safety Report 9054064 (Version 1)
Quarter: 2013Q1

REPORT INFORMATION
  Report Type: Spontaneous
  Country: US (occurrence: US)
  Receive Date: 20130208
  Receipt Date: 20130208
  Transmission Date: 20140127
  Serious: Yes (Hospitalization)
  Sender: FDA-Public Use
  Company Number: US-COVIDIEN/TYCO HEALTHCARE/MALLINCKRODT-T201300763

PATIENT
  Age: 2 Year
  Sex: Female

DRUGS (2)
  1. EXALGO EXTENDED RELEASE [Suspect]
     Dosage: 16 MG, SINGLE
  2. BENZODIAZEPINE DERIVATIVES [Suspect]
     Dosage: 2 MG, 2 TABLETS, SINGLE

REACTIONS (4)
  - Accidental exposure to product by child [Recovered/Resolved]
  - Delirium [Recovered/Resolved]
  - Ataxia [Recovered/Resolved]
  - Irritability [Recovered/Resolved]
